FAERS Safety Report 8090686-5 (Version None)
Quarter: 2012Q1

REPORT INFORMATION
  Report Type: 
  Country: None (occurrence: None)
  Receive Date: 20120129
  Receipt Date: 20111212
  Transmission Date: 20120608
  Serious: Yes (Hospitalization)
  Sender: FDA-Public Use
  Company Number: US-ABBOTT-11P-163-0881675-00

PATIENT
  Age: 41 Year
  Sex: Female

DRUGS (16)
  1. ENTOCORT EC [Concomitant]
     Indication: PRODUCT USED FOR UNKNOWN INDICATION
  2. LISINOPRIL [Concomitant]
     Indication: HYPERTENSION
  3. PROTONIX [Concomitant]
     Indication: PRODUCT USED FOR UNKNOWN INDICATION
  4. XANAX [Concomitant]
     Indication: ANXIETY
  5. HUMIRA [Suspect]
     Indication: CROHN'S DISEASE
     Route: 058
     Dates: start: 20111101
  6. THERAQUIL [Concomitant]
     Indication: PRODUCT USED FOR UNKNOWN INDICATION
  7. AMBIEN [Concomitant]
     Indication: PRODUCT USED FOR UNKNOWN INDICATION
  8. PROZAC [Concomitant]
     Indication: PRODUCT USED FOR UNKNOWN INDICATION
  9. PHENERGEN [Concomitant]
     Indication: NAUSEA
     Dosage: PRN
  10. ESTRATEST [Concomitant]
     Indication: PRODUCT USED FOR UNKNOWN INDICATION
  11. PERCOCET [Concomitant]
     Indication: PAIN
     Dosage: 10/650 MG AS REQUIRED
  12. VITAMIN B-12 [Concomitant]
     Indication: PRODUCT USED FOR UNKNOWN INDICATION
  13. UNKNOWN PAIN MEDICATION - THINKS IT'S A MORPHINE BASED [Concomitant]
     Indication: PAIN
     Dosage: AS REQUIRED EVERY 12 HOURS
  14. LYRICA [Concomitant]
     Indication: PRODUCT USED FOR UNKNOWN INDICATION
  15. IMURAN [Concomitant]
     Indication: PRODUCT USED FOR UNKNOWN INDICATION
  16. CARAFATE [Concomitant]
     Indication: PRODUCT USED FOR UNKNOWN INDICATION
     Dosage: 1G BEFORE MEALS AND AT BEDTIME

REACTIONS (3)
  - HAEMATOCHEZIA [None]
  - CROHN'S DISEASE [None]
  - WHITE BLOOD CELL COUNT DECREASED [None]
